FAERS Safety Report 16135831 (Version 2)
Quarter: 2019Q2

REPORT INFORMATION
  Report Type: Spontaneous
  Country: AU (occurrence: AU)
  Receive Date: 20190329
  Receipt Date: 20190417
  Transmission Date: 20190711
  Serious: Yes (Congenital Anomaly, Other)
  Sender: FDA-Public Use
  Company Number: AU-ABBVIE-19K-008-2721056-00

PATIENT

DRUGS (1)
  1. HUMIRA [Suspect]
     Active Substance: ADALIMUMAB
     Indication: MATERNAL EXPOSURE TIMING UNSPECIFIED
     Route: 064

REACTIONS (2)
  - Foetal exposure during pregnancy [Unknown]
  - Ventricular septal defect [Unknown]

NARRATIVE: CASE EVENT DATE: 20190319
